FAERS Safety Report 11184946 (Version 2)
Quarter: 2015Q2

REPORT INFORMATION
  Report Type: Report from Study
  Country: US (occurrence: US)
  Receive Date: 20150612
  Receipt Date: 20150629
  Transmission Date: 20150821
  Serious: No
  Sender: FDA-Public Use
  Company Number: US-009507513-1506USA006755

PATIENT
  Age: 18 Year
  Sex: Female

DRUGS (1)
  1. GRASTEK [Suspect]
     Active Substance: PHLEUM PRATENSE POLLEN
     Indication: RHINITIS ALLERGIC
     Dosage: 2800 BIOEQUIVALENT ALLERGY UNITS (BAUS)
     Route: 060
     Dates: start: 20150408, end: 20150502

REACTIONS (1)
  - Oral pruritus [Recovered/Resolved]

NARRATIVE: CASE EVENT DATE: 20150502
